FAERS Safety Report 16489663 (Version 1)
Quarter: 2019Q2

REPORT INFORMATION
  Report Type: Spontaneous
  Country: US (occurrence: US)
  Receive Date: 20190628
  Receipt Date: 20190628
  Transmission Date: 20190711
  Serious: Yes (Other)
  Sender: FDA-Public Use
  Company Number: US-UNITED THERAPEUTICS-UNT-2019-011112

PATIENT
  Age: 65 Year
  Sex: Female

DRUGS (1)
  1. ORENITRAM [Suspect]
     Active Substance: TREPROSTINIL
     Indication: PRODUCT USED FOR UNKNOWN INDICATION
     Dosage: 3.75 MG, TID
     Route: 048
     Dates: end: 20190623

REACTIONS (2)
  - Fall [Recovered/Resolved with Sequelae]
  - Lower limb fracture [Unknown]

NARRATIVE: CASE EVENT DATE: 20190603
